FAERS Safety Report 21703972 (Version 1)
Quarter: 2022Q4

REPORT INFORMATION
  Report Type: Spontaneous
  Country: IR (occurrence: IR)
  Receive Date: 20221209
  Receipt Date: 20221209
  Transmission Date: 20230113
  Serious: Yes (Death, Hospitalization)
  Sender: FDA-Public Use
  Company Number: IR-STRIDES ARCOLAB LIMITED-2022SP016475

PATIENT
  Age: 35 Year
  Sex: Female

DRUGS (17)
  1. METHOTREXATE [Suspect]
     Active Substance: METHOTREXATE
     Indication: Metastatic choriocarcinoma
     Dosage: UNK, CYCLICAL (4 CYCLES)
     Route: 065
  2. METHOTREXATE [Suspect]
     Active Substance: METHOTREXATE
     Dosage: UNK, CYCLICAL (5 CYCLES OF EMA-CO REGIMEN)
     Route: 065
  3. CISPLATIN [Suspect]
     Active Substance: CISPLATIN
     Indication: Metastatic choriocarcinoma
     Dosage: UNK (EMA-EP REGIMEN)
     Route: 065
  4. CISPLATIN [Suspect]
     Active Substance: CISPLATIN
     Dosage: UNK, CYCLICAL (3 CYCLES)
     Route: 065
  5. CARBOPLATIN [Suspect]
     Active Substance: CARBOPLATIN
     Indication: Metastatic choriocarcinoma
     Dosage: UNK, CYCLICAL (4 CYCLES)
     Route: 065
  6. ETOPOSIDE [Suspect]
     Active Substance: ETOPOSIDE
     Indication: Metastatic choriocarcinoma
     Dosage: UNK, CYCLICAL (4 CYCLES)
     Route: 065
  7. ETOPOSIDE [Suspect]
     Active Substance: ETOPOSIDE
     Dosage: UNK (EMA-EP REGIMEN)
     Route: 065
  8. ETOPOSIDE [Suspect]
     Active Substance: ETOPOSIDE
     Dosage: UNK, CYCLICAL (5 CYCLES OF EMA-CO REGIMEN )
     Route: 065
  9. ETOPOSIDE [Suspect]
     Active Substance: ETOPOSIDE
     Dosage: UNK, CYCLICAL (3 CYCLES)
     Route: 065
  10. PACLITAXEL [Suspect]
     Active Substance: PACLITAXEL
     Indication: Metastatic choriocarcinoma
     Dosage: UNK, CYCLICAL (3 CYCLES)
     Route: 065
  11. DOXORUBICIN HYDROCHLORIDE [Suspect]
     Active Substance: DOXORUBICIN HYDROCHLORIDE
     Indication: Metastatic choriocarcinoma
     Dosage: UNK, CYCLICAL (4 CYCLES) (LIPOSOMAL)
     Route: 065
  12. FLUOROURACIL [Suspect]
     Active Substance: FLUOROURACIL
     Indication: Metastatic choriocarcinoma
     Dosage: UNK, CYCLICAL (5 CYCLES)
     Route: 065
  13. ACTINOMYCIN D [Suspect]
     Active Substance: DACTINOMYCIN
     Indication: Metastatic choriocarcinoma
     Dosage: UNK, CYCLICAL (4 CYCLES)
     Route: 065
  14. ACTINOMYCIN D [Suspect]
     Active Substance: DACTINOMYCIN
     Dosage: UNK, CYCLICAL (5 CYCLES OF EMA-CO REGIMEN )
     Route: 065
  15. ACTINOMYCIN D [Suspect]
     Active Substance: DACTINOMYCIN
     Dosage: UNK, CYCLICAL (5 CYCLES)
     Route: 065
  16. CYCLOPHOSPHAMIDE [Suspect]
     Active Substance: CYCLOPHOSPHAMIDE
     Indication: Metastatic choriocarcinoma
     Dosage: UNK, CYCLICAL (5 CYCLES OF EMA-CO REGIMEN)
     Route: 065
  17. VINCRISTINE [Suspect]
     Active Substance: VINCRISTINE
     Indication: Metastatic choriocarcinoma
     Dosage: UNK, CYCLICAL (5 CYCLES OF EMA-CO REGIMEN)
     Route: 065

REACTIONS (2)
  - Drug ineffective [Fatal]
  - Off label use [Unknown]
